FAERS Safety Report 7953376-2 (Version None)
Quarter: 2011Q4

REPORT INFORMATION
  Report Type: 
  Country: None (occurrence: None)
  Receive Date: 20111202
  Receipt Date: 20111122
  Transmission Date: 20120403
  Serious: Yes (Other)
  Sender: FDA-Public Use
  Company Number: NL-BIOGENIDEC-2011BI044940

PATIENT
  Age: 33 Year
  Sex: Female

DRUGS (2)
  1. COPAXONE [Concomitant]
  2. AVONEX [Suspect]
     Indication: MULTIPLE SCLEROSIS
     Route: 030
     Dates: start: 20110901

REACTIONS (2)
  - URTICARIA [None]
  - SWELLING FACE [None]
